FAERS Safety Report 8157722-9 (Version None)
Quarter: 2012Q1

REPORT INFORMATION
  Report Type: 
  Country: None (occurrence: None)
  Receive Date: 20120222
  Receipt Date: 20120216
  Transmission Date: 20120608
  Serious: Yes (Other)
  Sender: FDA-Public Use
  Company Number: NL-BAXTER-2011BH037797

PATIENT
  Age: 31 Year
  Sex: Female

DRUGS (4)
  1. GAMMAGARD LIQUID [Suspect]
     Indication: IMMUNODEFICIENCY COMMON VARIABLE
     Dosage: 1.00 KIOVIG 100MG/ML FLAC 300ML (30G) 1X PER 28 DAGEN
     Route: 042
     Dates: start: 20101124
  2. GAMMAGARD LIQUID [Suspect]
     Dosage: 1.00 KIOVIG 100MG/ML FLAC 300ML (30G) 1X PER 28 DAGEN
     Route: 042
     Dates: start: 20111130, end: 20111130
  3. GAMMAGARD LIQUID [Suspect]
     Dosage: 1.00 KIOVIG 100MG/ML FLAC 300ML (30G) 1X PER 28 DAGEN
     Route: 042
     Dates: start: 20101124
  4. GAMMAGARD LIQUID [Suspect]
     Dosage: 1.00 KIOVIG 100MG/ML FLAC 300ML (30G) 1X PER 28 DAGEN
     Route: 042
     Dates: start: 20111104, end: 20111104

REACTIONS (1)
  - RESPIRATORY TRACT INFECTION [None]
